FAERS Safety Report 24569547 (Version 2)
Quarter: 2024Q4

REPORT INFORMATION
  Report Type: Spontaneous
  Country: ES (occurrence: ES)
  Receive Date: 20241031
  Receipt Date: 20241107
  Transmission Date: 20250115
  Serious: Yes (Hospitalization)
  Sender: AMGEN
  Company Number: ES-AMGEN-ESPSP2024212397

PATIENT
  Age: 64 Year
  Sex: Female

DRUGS (10)
  1. SOTORASIB [Suspect]
     Active Substance: SOTORASIB
     Indication: Lung adenocarcinoma stage IV
     Dosage: UNK
     Route: 065
     Dates: start: 20240618, end: 2024
  2. SOTORASIB [Suspect]
     Active Substance: SOTORASIB
     Indication: K-ras gene mutation
     Dosage: 480 MILLIGRAM (DOSE REDUCED)
     Route: 065
     Dates: start: 20240731, end: 20240813
  3. SOTORASIB [Suspect]
     Active Substance: SOTORASIB
     Dosage: UNK
     Route: 065
     Dates: start: 20240823, end: 2024
  4. SOTORASIB [Suspect]
     Active Substance: SOTORASIB
     Dosage: REINTRODUCED AT THE LOWEST DOSE LEVEL
     Route: 065
     Dates: start: 20241002, end: 202410
  5. PREDNISONE [Suspect]
     Active Substance: PREDNISONE
     Indication: Hepatotoxicity
     Dosage: ONE TABLET DAILY FOR 5 DAYS
     Route: 065
     Dates: start: 202409, end: 202409
  6. PREDNISONE [Suspect]
     Active Substance: PREDNISONE
     Dosage: TWO-THIRDS OF A TABLET DAILY FOR 5 DAYS
     Route: 065
     Dates: start: 2024, end: 2024
  7. PREDNISONE [Suspect]
     Active Substance: PREDNISONE
     Dosage: HALF A TABLET DAILY FOR 5 DAYS
     Route: 065
     Dates: start: 2024, end: 2024
  8. PREDNISONE [Suspect]
     Active Substance: PREDNISONE
     Dosage: ONE-THIRD OF A TABLET DAILY FOR 5 DAYS
     Route: 065
     Dates: start: 2024, end: 2024
  9. PREDNISONE [Suspect]
     Active Substance: PREDNISONE
     Dosage: ONE-THIRD OF A TABLET EVERY 2 DAYS FOR 6 DAYS
     Route: 065
     Dates: start: 2024, end: 2024
  10. PREDNISONE [Suspect]
     Active Substance: PREDNISONE
     Dosage: RESTARTED AGAIN
     Route: 065
     Dates: start: 2024

REACTIONS (5)
  - Hepatotoxicity [Unknown]
  - Coombs negative haemolytic anaemia [Recovered/Resolved]
  - Diarrhoea [Recovered/Resolved]
  - Clostridium test positive [Unknown]
  - Off label use [Unknown]

NARRATIVE: CASE EVENT DATE: 20240901
